FAERS Safety Report 14010672 (Version 4)
Quarter: 2018Q2

REPORT INFORMATION
  Report Type: Report from Study
  Country: None (occurrence: AU)
  Receive Date: 20170926
  Receipt Date: 20180607
  Transmission Date: 20180711
  Serious: Yes (Hospitalization, Other)
  Sender: FDA-Public Use
  Company Number: AU-ABBVIE-17K-008-2108693-00

PATIENT
  Age: 64 Year
  Sex: Female

DRUGS (4)
  1. HUMIRA [Suspect]
     Active Substance: ADALIMUMAB
     Indication: PSORIATIC ARTHROPATHY
     Route: 058
     Dates: start: 2018
  2. HUMIRA [Suspect]
     Active Substance: ADALIMUMAB
     Indication: PSORIATIC ARTHROPATHY
     Route: 058
     Dates: start: 20150402, end: 20180202
  3. HUMIRA [Suspect]
     Active Substance: ADALIMUMAB
     Route: 058
  4. HUMIRA [Suspect]
     Active Substance: ADALIMUMAB
     Route: 058
     Dates: start: 2018, end: 2018

REACTIONS (9)
  - Colitis [Unknown]
  - Appendicectomy [Recovered/Resolved]
  - Cardiac disorder [Recovered/Resolved]
  - Viral infection [Recovered/Resolved]
  - Cough [Unknown]
  - Hernia [Unknown]
  - Post procedural complication [Recovered/Resolved]
  - Genital disorder female [Unknown]
  - Arthritis [Unknown]

NARRATIVE: CASE EVENT DATE: 2017
